FAERS Safety Report 17186739 (Version 1)
Quarter: 2019Q4

REPORT INFORMATION
  Report Type: Report from Study
  Country: US (occurrence: US)
  Receive Date: 20191220
  Receipt Date: 20191220
  Transmission Date: 20200122
  Serious: Yes (Other)
  Sender: FDA-Public Use
  Company Number: US-SHIRE-US201943665

PATIENT
  Sex: Female

DRUGS (1)
  1. 606 (LIFITEGRAST) [Suspect]
     Active Substance: LIFITEGRAST
     Indication: PRODUCT USED FOR UNKNOWN INDICATION
     Dosage: UNK, 2X/DAY:BID
     Route: 047

REACTIONS (3)
  - Conjunctival haemorrhage [Unknown]
  - Instillation site foreign body sensation [Unknown]
  - Drug ineffective [Unknown]
